FAERS Safety Report 4663669-2 (Version None)
Quarter: 2005Q2

REPORT INFORMATION
  Report Type: 
  Country: None (occurrence: None)
  Receive Date: 20050517
  Receipt Date: 20050502
  Transmission Date: 20051028
  Serious: Yes (Other)
  Sender: FDA-Public Use
  Company Number: 2005068783

PATIENT
  Sex: Male

DRUGS (1)
  1. BENGAY (MENTHOL) [Suspect]
     Dosage: UNSPECIFIED AMOUT EVERY DAY, TOPICAL
     Route: 061

REACTIONS (3)
  - BACK DISORDER [None]
  - NEOPLASM MALIGNANT [None]
  - WEIGHT DECREASED [None]
